FAERS Safety Report 9563919 (Version 1)
Quarter: 2013Q3

REPORT INFORMATION
  Report Type: Spontaneous
  Country: US (occurrence: US)
  Receive Date: 20130927
  Receipt Date: 20130927
  Transmission Date: 20140515
  Serious: Yes (Other)
  Sender: FDA-Public Use
  Company Number: US-JNJFOC-20130911595

PATIENT
  Sex: Female

DRUGS (2)
  1. NICOTROL INHALER [Suspect]
     Route: 055
  2. NICOTROL INHALER [Suspect]
     Indication: SMOKING CESSATION THERAPY
     Route: 055

REACTIONS (6)
  - Viral infection [Unknown]
  - Choking sensation [Unknown]
  - Bronchitis [Unknown]
  - Malaise [Unknown]
  - Nasopharyngitis [Unknown]
  - Influenza [Unknown]
